FAERS Safety Report 12350056 (Version 1)
Quarter: 2016Q2

REPORT INFORMATION
  Report Type: Spontaneous
  Country: None (occurrence: None)
  Receive Date: 20160509
  Receipt Date: 20160509
  Transmission Date: 20160815
  Serious: No
  Sender: FDA-Public Use
  Company Number: None

PATIENT
  Age: 26 Year
  Sex: Male
  Weight: 79.38 kg

DRUGS (1)
  1. CYMBALTA [Suspect]
     Active Substance: DULOXETINE HYDROCHLORIDE
     Indication: DEPRESSION
     Dosage: IN THE MORNING TAKEN BY MOUTH
     Route: 048

REACTIONS (7)
  - Headache [None]
  - Pyrexia [None]
  - Drug dose omission [None]
  - Dysphoria [None]
  - Dizziness [None]
  - Suicidal ideation [None]
  - Vertigo [None]

NARRATIVE: CASE EVENT DATE: 20160506
